FAERS Safety Report 12383920 (Version 1)
Quarter: 2016Q2

REPORT INFORMATION
  Report Type: Spontaneous
  Country: US (occurrence: US)
  Receive Date: 20160519
  Receipt Date: 20160519
  Transmission Date: 20160815
  Serious: Yes (Hospitalization)
  Sender: FDA-Public Use
  Company Number: US-STRIDES ARCOLAB LIMITED-2016SP001062

PATIENT

DRUGS (2)
  1. VANCOMYCIN CAPSULES USP, 250 MG [Suspect]
     Active Substance: VANCOMYCIN
     Dosage: UNK
  2. VANCOMYCIN CAPSULES USP, 250 MG [Suspect]
     Active Substance: VANCOMYCIN
     Indication: CLOSTRIDIUM DIFFICILE INFECTION
     Dosage: 250 MG, UNK
     Route: 048

REACTIONS (1)
  - Drug ineffective [Unknown]
